FAERS Safety Report 5126316-1 (Version None)
Quarter: 2006Q3

REPORT INFORMATION
  Report Type: 
  Country: None (occurrence: None)
  Receive Date: 20060825
  Receipt Date: 20060404
  Transmission Date: 20061208
  Serious: Yes (Hospitalization)
  Sender: FDA-Public Use
  Company Number: 06P-163-0329935-00

PATIENT
  Age: 43 Year
  Sex: Female

DRUGS (3)
  1. SYNTHROID [Suspect]
     Indication: HYPOTHYROIDISM
     Dosage: 175 MCG, 1 IN 1 D, PER ORAL
     Route: 048
     Dates: start: 20010101
  2. PHENOBARBITAL TAB [Concomitant]
  3. PHENYTOIN SODIUM [Concomitant]

REACTIONS (1)
  - CONVULSION [None]
